FAERS Safety Report 10089655 (Version 2)
Quarter: 2014Q2

REPORT INFORMATION
  Report Type: Spontaneous
  Country: AU (occurrence: None)
  Receive Date: 20140417
  Receipt Date: 20140422
  Transmission Date: 20141212
  Serious: Yes (Other)
  Sender: FDA-Public Use
  Company Number: AUR-APL-2014-04617

PATIENT
  Age: 33 Year
  Sex: Male

DRUGS (3)
  1. QUETIAPINE [Suspect]
     Indication: SCHIZOPHRENIA
  2. RISPERIDONE (RISPERIDONE) [Suspect]
     Indication: AUTISM SPECTRUM DISORDER
  3. RISPERIDONE (RISPERIDONE) [Suspect]
     Indication: SCHIZOPHRENIA

REACTIONS (3)
  - Drug ineffective [None]
  - Aggression [None]
  - Homicide [None]
